FAERS Safety Report 9580042 (Version 1)
Quarter: 2013Q3

REPORT INFORMATION
  Report Type: Spontaneous
  Country: CA (occurrence: None)
  Receive Date: 20130930
  Receipt Date: 20130930
  Transmission Date: 20140515
  Serious: Yes (Other)
  Sender: FDA-Public Use
  Company Number: 2013P1019515

PATIENT
  Sex: 0

DRUGS (2)
  1. HEPARIN [Suspect]
     Indication: DEEP VEIN THROMBOSIS
     Dosage: 10000 UNITS; Q8H;SC
     Route: 058
  2. HEPARIN [Suspect]
     Indication: PROPHYLAXIS
     Dosage: 10000 UNITS; Q8H;SC
     Route: 058

REACTIONS (2)
  - Hyperkalaemia [None]
  - Hypoaldosteronism [None]
